FAERS Safety Report 8803253 (Version 2)
Quarter: 2015Q2

REPORT INFORMATION
  Report Type: Report from Study
  Country: US (occurrence: US)
  Receive Date: 20120924
  Receipt Date: 20150623
  Transmission Date: 20150821
  Serious: Yes (Death)
  Sender: FDA-Public Use
  Company Number: US-ROCHE-1093651

PATIENT
  Age: 57 Year
  Sex: Male

DRUGS (19)
  1. MEGACE [Concomitant]
     Active Substance: MEGESTROL ACETATE
     Route: 048
     Dates: start: 20070821
  2. APREPITANT. [Concomitant]
     Active Substance: APREPITANT
     Dosage: 80-125 MG?MISCELANEOUS 80-125MG DAILY
     Route: 048
     Dates: start: 20070510
  3. APREPITANT. [Concomitant]
     Active Substance: APREPITANT
     Route: 065
  4. FAMOTIDINE. [Concomitant]
     Active Substance: FAMOTIDINE
     Route: 042
  5. PALONOSETRON [Concomitant]
     Active Substance: PALONOSETRON
     Route: 042
     Dates: start: 20070510
  6. ACTIVASE [Concomitant]
     Active Substance: ALTEPLASE
     Route: 042
     Dates: start: 20070817
  7. DETROL [Concomitant]
     Active Substance: TOLTERODINE TARTRATE
     Route: 048
     Dates: start: 20070808
  8. AVASTIN [Suspect]
     Active Substance: BEVACIZUMAB
     Indication: BLADDER CANCER
     Route: 042
     Dates: start: 20070817
  9. DIPHENHYDRAMINE HCL [Concomitant]
     Active Substance: DIPHENHYDRAMINE HYDROCHLORIDE
     Route: 065
     Dates: start: 20070817
  10. ALLOPURINOL. [Concomitant]
     Active Substance: ALLOPURINOL
     Route: 048
  11. AVASTIN [Suspect]
     Active Substance: BEVACIZUMAB
     Indication: LUNG NEOPLASM MALIGNANT
     Route: 042
  12. CARBOPLATIN. [Concomitant]
     Active Substance: CARBOPLATIN
     Route: 042
     Dates: start: 20070817
  13. MORPHINE [Concomitant]
     Active Substance: MORPHINE
     Dosage: 1-3 TABLET Q 3-4 HRS PRN
     Route: 048
     Dates: start: 20070425
  14. SENNA S [Concomitant]
     Active Substance: DOCUSATE SODIUM\SENNA LEAF
     Dosage: 2 TABLET PRN
     Route: 048
     Dates: start: 20070423
  15. TAXOL [Concomitant]
     Active Substance: PACLITAXEL
     Route: 042
     Dates: start: 20070621
  16. LEVAQUIN [Concomitant]
     Active Substance: LEVOFLOXACIN
     Route: 048
     Dates: start: 20070816
  17. KADIAN [Concomitant]
     Active Substance: MORPHINE SULFATE
     Route: 065
     Dates: start: 20070426, end: 20070914
  18. COMPAZINE [Concomitant]
     Active Substance: PROCHLORPERAZINE MALEATE
     Route: 048
     Dates: start: 20070510
  19. DEXAMETHASONE. [Concomitant]
     Active Substance: DEXAMETHASONE
     Route: 065
     Dates: start: 20070510

REACTIONS (2)
  - Off label use [Unknown]
  - Death [Fatal]

NARRATIVE: CASE EVENT DATE: 20070906
